FAERS Safety Report 7599678-3 (Version None)
Quarter: 2011Q3

REPORT INFORMATION
  Report Type: 
  Country: None (occurrence: None)
  Receive Date: 20110711
  Receipt Date: 20110628
  Transmission Date: 20111222
  Serious: Yes (Hospitalization)
  Sender: FDA-Public Use
  Company Number: CA-ELI_LILLY_AND_COMPANY-CA201106008123

PATIENT
  Sex: Female

DRUGS (14)
  1. ZYPREXA [Suspect]
     Dosage: 2.5 MG, EACH EVENING
  2. ZYPREXA ZYDIS [Suspect]
     Dosage: 5 MG, QD
  3. SERAX [Concomitant]
  4. KEMADRIN [Concomitant]
  5. GABAPENTIN [Concomitant]
  6. LAMOTRIGINE [Concomitant]
  7. ACTONEL [Concomitant]
  8. ZYPREXA [Suspect]
     Dosage: 5 MG, QD
  9. ZYPREXA ZYDIS [Suspect]
     Indication: BIPOLAR DISORDER
     Dosage: 7.5 MG, QD
  10. ZYPREXA ZYDIS [Suspect]
     Dosage: 5 MG, PRN
  11. SEROQUEL [Concomitant]
  12. RISPERIDONE [Concomitant]
  13. ZYPREXA [Suspect]
     Indication: BIPOLAR DISORDER
     Dosage: 10 MG, EACH EVENING
  14. ZYPREXA [Suspect]
     Dosage: 7.5 MG, QD

REACTIONS (6)
  - HYPERGLYCAEMIA [None]
  - NORMOCHROMIC NORMOCYTIC ANAEMIA [None]
  - WOUND [None]
  - TYPE 2 DIABETES MELLITUS [None]
  - HYPERTENSION [None]
  - HYPOAESTHESIA [None]
